FAERS Safety Report 5664444-2 (Version None)
Quarter: 2008Q1

REPORT INFORMATION
  Report Type: 
  Country: None (occurrence: None)
  Receive Date: 20080312
  Receipt Date: 20080227
  Transmission Date: 20080703
  Serious: Yes (Hospitalization)
  Sender: FDA-Public Use
  Company Number: 000148

PATIENT
  Age: 53 Year
  Sex: Male
  Weight: 65.7 kg

DRUGS (3)
  1. PLETAL [Suspect]
     Indication: CEREBRAL INFARCTION
     Dosage: ORAL
     Route: 048
     Dates: end: 20080130
  2. TAKEPRON (LANSOPRAZOLE) TABLET [Concomitant]
  3. BLOPRESS (CANDESARTAN CILEXETIL) TABLET [Concomitant]

REACTIONS (1)
  - HEPATITIS B [None]
